FAERS Safety Report 14351643 (Version 2)
Quarter: 2018Q1

REPORT INFORMATION
  Report Type: Spontaneous
  Country: US (occurrence: US)
  Receive Date: 20180104
  Receipt Date: 20180321
  Transmission Date: 20180509
  Serious: No
  Sender: FDA-Public Use
  Company Number: US-ASTRAZENECA-2017SE83599

PATIENT
  Sex: Female

DRUGS (1)
  1. SYMBICORT [Suspect]
     Active Substance: BUDESONIDE\FORMOTEROL FUMARATE DIHYDRATE
     Dosage: 80/4.5 MCG TWO PUFFS TWO TIMES A DAY
     Route: 055

REACTIONS (12)
  - Chest discomfort [Unknown]
  - Intentional product misuse [Unknown]
  - Device malfunction [Unknown]
  - Circumstance or information capable of leading to medication error [Unknown]
  - Wheezing [Unknown]
  - Gait disturbance [Unknown]
  - Drug dose omission [Unknown]
  - Frustration tolerance decreased [Unknown]
  - Product storage error [Unknown]
  - Back disorder [Unknown]
  - Temperature intolerance [Unknown]
  - Wrong technique in product usage process [Unknown]
